FAERS Safety Report 6997342-2 (Version None)
Quarter: 2010Q3

REPORT INFORMATION
  Report Type: 
  Country: None (occurrence: None)
  Receive Date: 20100918
  Receipt Date: 20091001
  Transmission Date: 20110219
  Serious: No
  Sender: FDA-Public Use
  Company Number: US-WYE-H11366209

PATIENT
  Sex: Male
  Weight: 59.93 kg

DRUGS (4)
  1. PRISTIQ [Suspect]
     Indication: DEPRESSION
     Route: 048
     Dates: start: 20090901
  2. FLAXSEED [Concomitant]
  3. ACETYLSALICYLIC ACID [Concomitant]
  4. BUSPAR [Concomitant]

REACTIONS (2)
  - CONSTIPATION [None]
  - HEADACHE [None]
